FAERS Safety Report 14496195 (Version 1)
Quarter: 2018Q1

REPORT INFORMATION
  Report Type: Spontaneous
  Country: GB (occurrence: GB)
  Receive Date: 20180207
  Receipt Date: 20180207
  Transmission Date: 20180509
  Serious: Yes (Other)
  Sender: FDA-Public Use
  Company Number: GB-CONCORDIA PHARMACEUTICALS INC.-GSH201802-000491

PATIENT
  Age: 69 Year
  Sex: Female

DRUGS (2)
  1. PREDNISOLONE. [Suspect]
     Active Substance: PREDNISOLONE
     Dosage: DOSE INCREASED
  2. PREDNISOLONE. [Suspect]
     Active Substance: PREDNISOLONE
     Indication: MYALGIA

REACTIONS (3)
  - Retroperitoneal abscess [Unknown]
  - Peritonitis [Unknown]
  - Rectosigmoid cancer [Unknown]
